FAERS Safety Report 4490928-9 (Version None)
Quarter: 2004Q4

REPORT INFORMATION
  Report Type: 
  Country: None (occurrence: None)
  Receive Date: 20041027
  Receipt Date: 20041013
  Transmission Date: 20050328
  Serious: Yes (Death)
  Sender: FDA-Public Use
  Company Number: 2004S1000194

PATIENT
  Age: 64 Year
  Sex: Female

DRUGS (9)
  1. CUBICIN [Suspect]
     Indication: CELLULITIS
     Dosage: 400 MG;Q24H;IV
     Route: 042
     Dates: start: 20040801, end: 20040917
  2. CLONIDINE HCL [Concomitant]
  3. CARDIZEM [Concomitant]
  4. LASIX [Concomitant]
  5. K-DUR 10 [Concomitant]
  6. LIPITOR [Concomitant]
  7. ALLOPURINOL [Concomitant]
  8. PLAQUENIL [Concomitant]
  9. NEXIUM [Concomitant]

REACTIONS (14)
  - BLOOD CREATININE INCREASED [None]
  - BLOOD POTASSIUM INCREASED [None]
  - BLOOD PRESSURE ABNORMAL [None]
  - CHEST PAIN [None]
  - CREATININE RENAL CLEARANCE DECREASED [None]
  - DEVICE FAILURE [None]
  - DIARRHOEA [None]
  - FEELING COLD [None]
  - HYPOAESTHESIA [None]
  - MALAISE [None]
  - NAUSEA [None]
  - RED BLOOD CELL SEDIMENTATION RATE INCREASED [None]
  - REFUSAL OF TREATMENT BY PATIENT [None]
  - VOMITING [None]
